FAERS Safety Report 12166061 (Version 1)
Quarter: 2016Q1

REPORT INFORMATION
  Report Type: Spontaneous
  Country: None (occurrence: US)
  Receive Date: 20160309
  Receipt Date: 20160309
  Transmission Date: 20160526
  Serious: No
  Sender: FDA-Public Use
  Company Number: US-SHIRE-US201602868

PATIENT
  Sex: Male
  Weight: 54.42 kg

DRUGS (1)
  1. VYVANSE [Suspect]
     Active Substance: LISDEXAMFETAMINE DIMESYLATE
     Indication: ATTENTION DEFICIT/HYPERACTIVITY DISORDER
     Dosage: 30 MG, 1X/DAY:QD
     Route: 048

REACTIONS (3)
  - No adverse event [Not Recovered/Not Resolved]
  - Product quality issue [Unknown]
  - Incorrect dose administered [Not Recovered/Not Resolved]
